FAERS Safety Report 16787204 (Version 2)
Quarter: 2019Q4

REPORT INFORMATION
  Report Type: Spontaneous
  Country: US (occurrence: US)
  Receive Date: 20190909
  Receipt Date: 20191106
  Transmission Date: 20200122
  Serious: No
  Sender: FDA-Public Use
  Company Number: US-SA-2019SA250392

PATIENT
  Age: 58 Year
  Sex: Female

DRUGS (2)
  1. DUPIXENT [Suspect]
     Active Substance: DUPILUMAB
     Indication: RHINITIS ALLERGIC
     Dosage: 600 MG, 1X
     Route: 058
     Dates: start: 20190725, end: 20190725
  2. DUPIXENT [Suspect]
     Active Substance: DUPILUMAB
     Indication: ASTHMA
     Dosage: 300 MG, QOW
     Route: 058
     Dates: start: 201908

REACTIONS (4)
  - Rash pruritic [Unknown]
  - Urticaria [Unknown]
  - Product use in unapproved indication [Unknown]
  - Rash macular [Unknown]

NARRATIVE: CASE EVENT DATE: 2019
